FAERS Safety Report 17387519 (Version 1)
Quarter: 2020Q1

REPORT INFORMATION
  Report Type: Spontaneous
  Country: US (occurrence: US)
  Receive Date: 20200123
  Receipt Date: 20200123
  Transmission Date: 20200409
  Serious: Yes (Hospitalization)
  Sender: FDA-Public Use
  Company Number: None

PATIENT
  Age: 61 Year
  Sex: Female

DRUGS (1)
  1. ORENCIA [Suspect]
     Active Substance: ABATACEPT
     Indication: RHEUMATOID ARTHRITIS
     Route: 058
     Dates: start: 20190216

REACTIONS (9)
  - Spinal pain [None]
  - Back pain [None]
  - Squamous cell carcinoma [None]
  - Joint stiffness [None]
  - Pain in extremity [None]
  - Musculoskeletal disorder [None]
  - Gait disturbance [None]
  - Pain [None]
  - Fall [None]

NARRATIVE: CASE EVENT DATE: 20191209
